FAERS Safety Report 9603347 (Version 1)
Quarter: 2013Q4

REPORT INFORMATION
  Report Type: Spontaneous
  Country: US (occurrence: US)
  Receive Date: 20131007
  Receipt Date: 20131007
  Transmission Date: 20140711
  Serious: Yes (Disabling, Other)
  Sender: FDA-Public Use
  Company Number: US-009507513-1310USA003007

PATIENT
  Sex: Female

DRUGS (2)
  1. JANUVIA [Suspect]
     Dosage: UNK
     Route: 048
     Dates: start: 200812, end: 201101
  2. BYETTA [Suspect]
     Dosage: UNK
     Dates: start: 201101, end: 2013

REACTIONS (1)
  - Thyroid cancer [Unknown]
